FAERS Safety Report 17456614 (Version 1)
Quarter: 2020Q1

REPORT INFORMATION
  Report Type: Spontaneous
  Country: GT (occurrence: GT)
  Receive Date: 20200225
  Receipt Date: 20200225
  Transmission Date: 20200409
  Serious: Yes (Hospitalization)
  Sender: FDA-Public Use
  Company Number: GT-PFIZER INC-2020082417

PATIENT
  Sex: Male

DRUGS (1)
  1. SUTENT [Suspect]
     Active Substance: SUNITINIB MALATE
     Indication: RENAL CANCER METASTATIC
     Dosage: UNK, CYCLIC

REACTIONS (8)
  - Gastric haemorrhage [Unknown]
  - Haemoglobin decreased [Unknown]
  - Nutritional condition abnormal [Unknown]
  - Chronic gastritis [Unknown]
  - Decreased appetite [Unknown]
  - White blood cell count decreased [Unknown]
  - Platelet count decreased [Unknown]
  - Somnolence [Unknown]
